FAERS Safety Report 20058718 (Version 1)
Quarter: 2021Q4

REPORT INFORMATION
  Report Type: Spontaneous
  Country: US (occurrence: US)
  Receive Date: 20211111
  Receipt Date: 20211111
  Transmission Date: 20220303
  Serious: Yes (Death)
  Sender: FDA-Public Use
  Company Number: US-TEVA-2021-US-1975055

PATIENT
  Age: 89 Year
  Sex: Female

DRUGS (3)
  1. METHOTREXATE [Suspect]
     Active Substance: METHOTREXATE
     Indication: Product used for unknown indication
     Route: 065
  2. FOLATE SODIUM [Suspect]
     Active Substance: FOLATE SODIUM
     Indication: Toxicity to various agents
     Route: 065
  3. NOREPINEPHRINE [Suspect]
     Active Substance: NOREPINEPHRINE
     Indication: Toxicity to various agents
     Route: 065

REACTIONS (9)
  - Delirium [Fatal]
  - Toxicity to various agents [Fatal]
  - Haemolysis [Fatal]
  - Coagulopathy [Fatal]
  - Thrombocytopenia [Fatal]
  - Rash [Fatal]
  - Blister [Fatal]
  - Blister [Fatal]
  - Drug ineffective [Fatal]
